FAERS Safety Report 19820464 (Version 1)
Quarter: 2021Q3

REPORT INFORMATION
  Report Type: Spontaneous
  Country: US (occurrence: US)
  Receive Date: 20210911
  Receipt Date: 20210911
  Transmission Date: 20211014
  Serious: Yes (Disabling, Other)
  Sender: FDA-Public Use
  Company Number: None

PATIENT
  Age: 31 Year
  Sex: Male
  Weight: 113.85 kg

DRUGS (5)
  1. ATENOLOL. [Concomitant]
     Active Substance: ATENOLOL
  2. LAMICTAL XR [Concomitant]
     Active Substance: LAMOTRIGINE
  3. CLONAZEPAM 2MG TABS [Suspect]
     Active Substance: CLONAZEPAM
     Indication: PANIC DISORDER
     Dosage: ?          QUANTITY:60 CAPSULE(S);?
     Route: 048
  4. FLUVOXAMINE [Concomitant]
     Active Substance: FLUVOXAMINE
  5. SYNTHROID [Concomitant]
     Active Substance: LEVOTHYROXINE SODIUM

REACTIONS (12)
  - Night sweats [None]
  - Muscular weakness [None]
  - Suicide attempt [None]
  - Anxiety [None]
  - Photosensitivity reaction [None]
  - Product substitution issue [None]
  - Paranoia [None]
  - Anger [None]
  - Palpitations [None]
  - Fatigue [None]
  - Suspected product quality issue [None]
  - Drug ineffective [None]

NARRATIVE: CASE EVENT DATE: 20210819
